FAERS Safety Report 5573859-2 (Version None)
Quarter: 2007Q4

REPORT INFORMATION
  Report Type: 
  Country: None (occurrence: None)
  Receive Date: 20071226
  Receipt Date: 20071214
  Transmission Date: 20080405
  Serious: Yes (Other)
  Sender: FDA-Public Use
  Company Number: IT-RANBAXY-2007RR-12099

PATIENT

DRUGS (1)
  1. LORAZEPAM [Suspect]
     Route: 015

REACTIONS (5)
  - APNOEA [None]
  - CYANOSIS [None]
  - HYPOTONIA [None]
  - METABOLIC DISORDER [None]
  - POOR SUCKING REFLEX [None]
